FAERS Safety Report 7175910-5 (Version None)
Quarter: 2010Q4

REPORT INFORMATION
  Report Type: 
  Country: None (occurrence: None)
  Receive Date: 20101220
  Receipt Date: 20101208
  Transmission Date: 20110411
  Serious: Yes (Other)
  Sender: FDA-Public Use
  Company Number: US-BIOGENIDEC-2009BI010118

PATIENT
  Age: 36 Year
  Sex: Female
  Weight: 50 kg

DRUGS (1)
  1. TYSABRI [Suspect]
     Indication: MULTIPLE SCLEROSIS
     Route: 042
     Dates: start: 20080501, end: 20101122

REACTIONS (11)
  - BRONCHITIS [None]
  - CARPAL TUNNEL SYNDROME [None]
  - FATIGUE [None]
  - GRAND MAL CONVULSION [None]
  - JOINT CREPITATION [None]
  - LOSS OF CONSCIOUSNESS [None]
  - MUSCLE SPASMS [None]
  - PERONEAL NERVE PALSY [None]
  - PYREXIA [None]
  - STRESS [None]
  - URINARY HESITATION [None]
